FAERS Safety Report 11937385 (Version 1)
Quarter: 2016Q1

REPORT INFORMATION
  Report Type: Spontaneous
  Country: IT (occurrence: IT)
  Receive Date: 20160121
  Receipt Date: 20160121
  Transmission Date: 20160526
  Serious: Yes (Life-Threatening, Hospitalization)
  Sender: FDA-Public Use
  Company Number: IT-ELI_LILLY_AND_COMPANY-IT201601007287

PATIENT
  Age: 61 Year
  Sex: Female

DRUGS (3)
  1. FLUOXETINE HYDROCHLORIDE. [Suspect]
     Active Substance: FLUOXETINE HYDROCHLORIDE
     Indication: WEIGHT DECREASED
     Dosage: UNK, UNKNOWN
     Route: 065
  2. TARAXACUM OFFICINALE [Suspect]
     Active Substance: TARAXACUM OFFICINALE
     Indication: WEIGHT DECREASED
  3. GLUCOMANNAN [Suspect]
     Active Substance: KONJAC MANNAN
     Indication: WEIGHT DECREASED

REACTIONS (3)
  - Atrial tachycardia [Recovered/Resolved]
  - Off label use [Unknown]
  - Torsade de pointes [Recovered/Resolved]
